FAERS Safety Report 4372077-3 (Version None)
Quarter: 2004Q2

REPORT INFORMATION
  Report Type: 
  Country: None (occurrence: None)
  Receive Date: 20040602
  Receipt Date: 20040519
  Transmission Date: 20050107
  Serious: Yes (Disabling, Other)
  Sender: FDA-Public Use
  Company Number: DEU-2004-0000858

PATIENT
  Age: 45 Year
  Sex: Female

DRUGS (2)
  1. OXYCODONE HCL [Suspect]
     Indication: DRUG USE FOR UNKNOWN INDICATION
     Dosage: 360 MG, DAILY, ORAL, 160 MG BID, UNK ORAL
     Route: 048
     Dates: start: 19980101, end: 20020101
  2. OXYCODONE HCL [Suspect]
     Indication: DRUG USE FOR UNKNOWN INDICATION
     Dosage: 360 MG, DAILY, ORAL, 160 MG BID, UNK ORAL
     Route: 048
     Dates: start: 20030101

REACTIONS (2)
  - GINGIVAL RECESSION [None]
  - TOOTH LOSS [None]
